FAERS Safety Report 11727107 (Version 6)
Quarter: 2018Q2

REPORT INFORMATION
  Report Type: Spontaneous
  Country: US (occurrence: US)
  Receive Date: 20151112
  Receipt Date: 20180416
  Transmission Date: 20180711
  Serious: Yes (Congenital Anomaly, Other)
  Sender: FDA-Public Use
  Company Number: PHEH2015US023238

PATIENT
  Sex: Male

DRUGS (2)
  1. ZOFRAN [Suspect]
     Active Substance: ONDANSETRON HYDROCHLORIDE
     Indication: FOETAL EXPOSURE DURING PREGNANCY
     Dosage: UNK
     Route: 064
  2. ONDANSETRON [Suspect]
     Active Substance: ONDANSETRON
     Indication: FOETAL EXPOSURE DURING PREGNANCY
     Dosage: MOTHER^S DOSE: 8 MG, PRN
     Route: 064

REACTIONS (17)
  - Cleft lip [Unknown]
  - Multiple congenital abnormalities [Unknown]
  - Pain [Unknown]
  - Poor feeding infant [Unknown]
  - Injury [Unknown]
  - Anhedonia [Unknown]
  - Gastrooesophageal reflux disease [Unknown]
  - Umbilical cord haemorrhage [Unknown]
  - Anxiety [Unknown]
  - Foetal exposure during pregnancy [Unknown]
  - Emotional distress [Unknown]
  - Cleft palate [Unknown]
  - Constipation [Unknown]
  - Otitis media chronic [Unknown]
  - Congenital anomaly [Unknown]
  - Clavicle fracture [Unknown]
  - Failure to thrive [Unknown]
